FAERS Safety Report 16240259 (Version 2)
Quarter: 2019Q2

REPORT INFORMATION
  Report Type: Spontaneous
  Country: BE (occurrence: BE)
  Receive Date: 20190425
  Receipt Date: 20190517
  Transmission Date: 20190711
  Serious: Yes (Hospitalization)
  Sender: FDA-Public Use
  Company Number: BE-TEVA-2019-BE-1041492

PATIENT
  Age: 65 Year
  Sex: Female

DRUGS (8)
  1. IBRANCE [Suspect]
     Active Substance: PALBOCICLIB
     Indication: METASTASES TO LIVER
  2. LETROZOLE 2,5 MG [Suspect]
     Active Substance: LETROZOLE
     Indication: BREAST CANCER
     Dosage: 2.5 MILLIGRAM DAILY;
     Route: 048
  3. L-THYROXINE CHRISTIAENS [Concomitant]
     Active Substance: LEVOTHYROXINE
     Route: 065
  4. LETROZOLE 2,5 MG [Suspect]
     Active Substance: LETROZOLE
     Indication: METASTASES TO LIVER
  5. IBRANCE [Suspect]
     Active Substance: PALBOCICLIB
     Indication: BREAST CANCER
     Dosage: 125 MILLIGRAM DAILY; 3 WEEKS, THEN 1 WEEK STOP
     Route: 048
     Dates: start: 20190116, end: 20190301
  6. XGEVA [Concomitant]
     Active Substance: DENOSUMAB
     Route: 065
  7. SERTRALINE [Suspect]
     Active Substance: SERTRALINE HYDROCHLORIDE
     Route: 065
  8. COVERSYL 5 MG [Suspect]
     Active Substance: PERINDOPRIL
     Route: 065

REACTIONS (4)
  - Large intestine infection [Recovering/Resolving]
  - Vomiting [Recovering/Resolving]
  - Decreased appetite [Recovering/Resolving]
  - Diarrhoea [Recovering/Resolving]

NARRATIVE: CASE EVENT DATE: 20190301
